FAERS Safety Report 9901752 (Version 2)
Quarter: 2014Q3

REPORT INFORMATION
  Report Type: Spontaneous
  Country: US (occurrence: US)
  Receive Date: 20140217
  Receipt Date: 20140731
  Transmission Date: 20150326
  Serious: Yes (Hospitalization, Other)
  Sender: FDA-Public Use
  Company Number: US-009507513-1402USA007216

PATIENT
  Sex: Female
  Weight: 83 kg

DRUGS (1)
  1. NUVARING [Suspect]
     Active Substance: ETHINYL ESTRADIOL\ETONOGESTREL
     Indication: CONTRACEPTION
     Dosage: 0.120/0.015 MG PER 24 HOURS
     Route: 067
     Dates: start: 20130212

REACTIONS (5)
  - Sinusitis [Unknown]
  - Pulmonary embolism [Unknown]
  - Haemorrhoids [Unknown]
  - Pulmonary embolism [Recovered/Resolved]
  - Maternal exposure before pregnancy [Unknown]

NARRATIVE: CASE EVENT DATE: 2013
